FAERS Safety Report 6929048-X (Version None)
Quarter: 2010Q3

REPORT INFORMATION
  Report Type: 
  Country: None (occurrence: None)
  Receive Date: 20100817
  Receipt Date: 20100804
  Transmission Date: 20110219
  Serious: Yes (Hospitalization)
  Sender: FDA-Public Use
  Company Number: FR-ABBOTT-10P-056-0660563-00

PATIENT
  Age: 38 Year
  Sex: Female

DRUGS (12)
  1. DEPAKENE [Suspect]
     Indication: EPILEPSY
     Route: 048
  2. DOXORUBICIN HCL [Suspect]
     Indication: NEOPLASM MALIGNANT
     Route: 041
     Dates: start: 20100219, end: 20100219
  3. DOXORUBICIN HCL [Suspect]
     Route: 041
     Dates: start: 20100313, end: 20100313
  4. DOXORUBICIN HCL [Suspect]
     Route: 041
     Dates: start: 20100408, end: 20100408
  5. DOXORUBICIN HCL [Suspect]
     Route: 041
     Dates: start: 20100505, end: 20100505
  6. CISPLATIN [Suspect]
     Indication: NEOPLASM MALIGNANT
     Route: 041
     Dates: start: 20100219, end: 20100219
  7. CISPLATIN [Suspect]
     Route: 041
     Dates: start: 20100313, end: 20100313
  8. HOLOXAN [Suspect]
     Indication: NEOPLASM MALIGNANT
     Route: 041
     Dates: start: 20100219, end: 20100220
  9. HOLOXAN [Suspect]
     Route: 041
     Dates: start: 20100313, end: 20100314
  10. HOLOXAN [Suspect]
     Route: 041
     Dates: start: 20100408, end: 20100409
  11. HOLOXAN [Suspect]
     Route: 041
     Dates: start: 20100505, end: 20100506
  12. CARBOPLATIN [Concomitant]
     Indication: PRODUCT USED FOR UNKNOWN INDICATION
     Dates: start: 20100408, end: 20100505

REACTIONS (4)
  - BLOOD CREATININE INCREASED [None]
  - RENAL FAILURE ACUTE [None]
  - RENAL FUNCTION TEST ABNORMAL [None]
  - RENAL TUBULAR DISORDER [None]
